FAERS Safety Report 6393222-4 (Version None)
Quarter: 2009Q4

REPORT INFORMATION
  Report Type: 
  Country: None (occurrence: None)
  Receive Date: 20091008
  Receipt Date: 20090928
  Transmission Date: 20100525
  Serious: Yes (Other)
  Sender: FDA-Public Use
  Company Number: AU-BRISTOL-MYERS SQUIBB COMPANY-14808679

PATIENT
  Age: 44 Year
  Sex: Male

DRUGS (7)
  1. EFAVIRENZ [Suspect]
     Indication: HIV INFECTION
  2. ATAZANAVIR [Suspect]
     Indication: HIV INFECTION
  3. INDINAVIR [Suspect]
     Indication: HIV INFECTION
  4. LAMIVUDINE [Suspect]
     Indication: HIV INFECTION
  5. ABACAVIR [Suspect]
     Indication: HIV INFECTION
  6. RITONAVIR [Suspect]
     Indication: HIV INFECTION
  7. RALTEGRAVIR [Suspect]
     Indication: HIV INFECTION

REACTIONS (1)
  - PARKINSONISM [None]
